FAERS Safety Report 11228463 (Version 3)
Quarter: 2015Q3

REPORT INFORMATION
  Report Type: Report from Study
  Country: DE (occurrence: DE)
  Receive Date: 20150630
  Receipt Date: 20150903
  Transmission Date: 20151125
  Serious: Yes (Hospitalization)
  Sender: FDA-Public Use
  Company Number: DE-ABBVIE-15P-062-1416248-00

PATIENT
  Age: 80 Year
  Sex: Male

DRUGS (5)
  1. SPASMEX [Concomitant]
     Active Substance: TROSPIUM CHLORIDE
     Indication: PRODUCT USED FOR UNKNOWN INDICATION
  2. LEVOCOMP [Concomitant]
     Active Substance: CARBIDOPA\LEVODOPA
     Indication: PRODUCT USED FOR UNKNOWN INDICATION
     Dosage: AT NIGHT
  3. CIPRAMIL [Concomitant]
     Active Substance: CITALOPRAM HYDROBROMIDE
     Indication: PRODUCT USED FOR UNKNOWN INDICATION
  4. MOXIFLOXACINE [Concomitant]
     Indication: PRODUCT USED FOR UNKNOWN INDICATION
     Dates: start: 20150609
  5. DUODOPA [Suspect]
     Active Substance: CARBIDOPA\LEVODOPA
     Indication: PARKINSON^S DISEASE
     Dosage: MD 10ML, CRD 5.2ML/H, ED 3ML,20MG LEVODOPA/ML,7AM-10PM,TD 1700MG DAILY
     Route: 050
     Dates: start: 20120823

REACTIONS (28)
  - Cachexia [Unknown]
  - Pericardial effusion [Unknown]
  - Paraesthesia [Unknown]
  - Pleural effusion [Unknown]
  - Fall [Unknown]
  - Parkinsonism [Not Recovered/Not Resolved]
  - Pneumonia [Not Recovered/Not Resolved]
  - Pneumonia [Unknown]
  - Sputum discoloured [Unknown]
  - Dehydration [Unknown]
  - Diet refusal [Unknown]
  - General physical health deterioration [Unknown]
  - Confusional state [Unknown]
  - Breath sounds abnormal [Unknown]
  - Asthenia [Unknown]
  - Productive cough [Unknown]
  - Agitation [Unknown]
  - Mobility decreased [Not Recovered/Not Resolved]
  - Infection [Unknown]
  - Respiratory tract congestion [Unknown]
  - Weight decreased [Unknown]
  - Dementia [Unknown]
  - Anxiety [Unknown]
  - Pain in extremity [Unknown]
  - Cognitive disorder [Unknown]
  - Skin abrasion [Unknown]
  - Gait disturbance [Unknown]
  - Left ventricular hypertrophy [Unknown]

NARRATIVE: CASE EVENT DATE: 2015
